FAERS Safety Report 7432769-6 (Version None)
Quarter: 2011Q2

REPORT INFORMATION
  Report Type: 
  Country: None (occurrence: None)
  Receive Date: 20110422
  Receipt Date: 20110414
  Transmission Date: 20111010
  Serious: Yes (Hospitalization)
  Sender: FDA-Public Use
  Company Number: B0675724A

PATIENT
  Sex: Female
  Weight: 58 kg

DRUGS (4)
  1. PYDOXAL [Concomitant]
     Route: 048
     Dates: start: 20091007, end: 20091013
  2. DEPAS [Concomitant]
     Indication: ANXIETY DISORDER
     Route: 048
  3. TYKERB [Suspect]
     Indication: BREAST CANCER
     Dosage: 1250MG PER DAY
     Route: 048
     Dates: start: 20091007, end: 20100614
  4. XELODA [Concomitant]
     Dosage: 2400MG PER DAY
     Route: 048
     Dates: start: 20091007, end: 20091013

REACTIONS (1)
  - PSEUDOMEMBRANOUS COLITIS [None]
